FAERS Safety Report 9614628 (Version 2)
Quarter: 2013Q4

REPORT INFORMATION
  Report Type: Spontaneous
  Country: US (occurrence: US)
  Receive Date: 20131011
  Receipt Date: 20131022
  Transmission Date: 20140711
  Serious: No
  Sender: FDA-Public Use
  Company Number: US-009507513-1310USA005118

PATIENT
  Sex: Female
  Weight: 117.46 kg

DRUGS (1)
  1. NEXPLANON [Suspect]
     Dosage: 1 ROD
     Route: 059
     Dates: start: 20131003

REACTIONS (2)
  - Device expulsion [Unknown]
  - No adverse event [Unknown]
